FAERS Safety Report 5217676-1 (Version None)
Quarter: 2006Q4

REPORT INFORMATION
  Report Type: 
  Country: None (occurrence: None)
  Receive Date: 20061130
  Receipt Date: 20060623
  Transmission Date: 20070319
  Serious: Yes (Other)
  Sender: FDA-Public Use
  Company Number: US200601004845

PATIENT
  Age: 65 Year
  Sex: Female
  Weight: 93.9 kg

DRUGS (12)
  1. ZYPREXA [Suspect]
     Indication: DEPRESSION
     Dosage: 10 MG, DAILY (1/D),; 15MG, DAILY (1/D);
     Dates: start: 20010101
  2. ZYPREXA [Suspect]
     Indication: DEPRESSION
     Dosage: 10 MG, DAILY (1/D),; 15MG, DAILY (1/D);
     Dates: start: 20030701
  3. ZYPREXA [Suspect]
     Indication: DEPRESSION
     Dosage: 10 MG, DAILY (1/D),; 15MG, DAILY (1/D);
     Dates: start: 20050720
  4. THYROID (THYROID UNKNOWN FORMULATION) [Concomitant]
  5. ATIVAN [Concomitant]
  6. ASPIRIN [Concomitant]
  7. LEXAPRO /USA/ (ESCITALOPRAM) [Concomitant]
  8. VIVACTIL [Concomitant]
  9. PREMARIN [Concomitant]
  10. WELLBUTRIN [Concomitant]
  11. VOSTEC (ENALAPRIL MALEATE) [Concomitant]
  12. LIPITOR [Concomitant]

REACTIONS (6)
  - BLOOD CREATININE INCREASED [None]
  - BLOOD TRIGLYCERIDES INCREASED [None]
  - DIABETES MELLITUS NON-INSULIN-DEPENDENT [None]
  - GLYCOSYLATED HAEMOGLOBIN INCREASED [None]
  - MICROALBUMINURIA [None]
  - WEIGHT INCREASED [None]
